FAERS Safety Report 10421824 (Version 2)
Quarter: 2014Q3

REPORT INFORMATION
  Report Type: Spontaneous
  Country: FR (occurrence: FR)
  Receive Date: 20140901
  Receipt Date: 20140901
  Transmission Date: 20150326
  Serious: Yes (Hospitalization)
  Sender: FDA-Public Use
  Company Number: FR-AUROBINDO-AUR-APL-2014-08582

PATIENT
  Age: 78 Year
  Sex: Female

DRUGS (16)
  1. CORDARONE [Suspect]
     Active Substance: AMIODARONE HYDROCHLORIDE
     Dosage: 10 DF
     Route: 048
     Dates: start: 20140103, end: 20140103
  2. KALEORID [Concomitant]
     Active Substance: POTASSIUM CHLORIDE
     Indication: PRODUCT USED FOR UNKNOWN INDICATION
     Route: 065
  3. FUROSEMIDE RENAUDIN [Interacting]
     Active Substance: FUROSEMIDE
     Indication: CARDIAC FAILURE
     Dosage: 2 VIALS, 3 TIMES A DAY
     Route: 042
     Dates: start: 20140103, end: 20140104
  4. ATACAND [Concomitant]
     Active Substance: CANDESARTAN CILEXETIL
     Indication: PRODUCT USED FOR UNKNOWN INDICATION
     Route: 065
  5. CORDARONE [Suspect]
     Active Substance: AMIODARONE HYDROCHLORIDE
     Dosage: 4 DF, MORNING
     Route: 048
     Dates: start: 20140104, end: 20140104
  6. FUROSEMIDE RENAUDIN [Interacting]
     Active Substance: FUROSEMIDE
     Dosage: 1 VIAL, 3 TIMES A DAY
     Route: 042
     Dates: start: 20140105, end: 20140107
  7. BISOPROLOL ARROW [Interacting]
     Active Substance: BISOPROLOL
     Dosage: 2.5 MG, ONCE A DAY
     Route: 065
     Dates: start: 20140106
  8. NEBIVOLOL 5MG [Interacting]
     Active Substance: NEBIVOLOL
     Dosage: 5 MG, DAILY
     Route: 046
  9. CORDARONE [Suspect]
     Active Substance: AMIODARONE HYDROCHLORIDE
     Indication: ATRIAL FIBRILLATION
     Dosage: 1 DF, UNK
     Route: 048
     Dates: start: 20101209, end: 20140104
  10. RISORDAN                           /07346501/ [Concomitant]
     Indication: ACUTE RESPIRATORY FAILURE
  11. BISOPROLOL ARROW [Suspect]
     Active Substance: BISOPROLOL
     Indication: CARDIAC FAILURE
     Dosage: UNK
     Route: 048
     Dates: start: 20140103, end: 20140104
  12. NEBIVOLOL 5MG [Interacting]
     Active Substance: NEBIVOLOL
     Indication: CARDIAC FAILURE CHRONIC
     Dosage: 1 DF, FOUR TIMES/DAY
     Route: 048
     Dates: end: 20140102
  13. NEBILOX [Concomitant]
     Active Substance: NEBIVOLOL HYDROCHLORIDE
     Indication: PRODUCT USED FOR UNKNOWN INDICATION
     Route: 065
  14. RISORDAN                           /07346501/ [Concomitant]
     Indication: CARDIAC FAILURE
     Dosage: UNK
     Route: 065
  15. LASILIX                            /00032601/ [Concomitant]
     Active Substance: FUROSEMIDE
     Indication: PRODUCT USED FOR UNKNOWN INDICATION
     Dosage: UNK
     Route: 065
     Dates: start: 20140108
  16. KARDEGIC [Concomitant]
     Active Substance: ASPIRIN LYSINE
     Indication: PRODUCT USED FOR UNKNOWN INDICATION
     Route: 065

REACTIONS (11)
  - Cardiac failure [Recovered/Resolved]
  - Ischaemia [Recovered/Resolved]
  - Drug interaction [Recovered/Resolved]
  - Myocardial ischaemia [None]
  - Coronary artery occlusion [None]
  - Chest discomfort [Recovered/Resolved]
  - Acute respiratory failure [None]
  - Atrial fibrillation [Recovered/Resolved]
  - Hypokalaemia [Recovered/Resolved]
  - Electrocardiogram QT prolonged [Recovered/Resolved]
  - Hypothyroidism [Recovered/Resolved]

NARRATIVE: CASE EVENT DATE: 20140103
